FAERS Safety Report 17233112 (Version 1)
Quarter: 2020Q1

REPORT INFORMATION
  Report Type: Spontaneous
  Country: IT (occurrence: IT)
  Receive Date: 20200104
  Receipt Date: 20200104
  Transmission Date: 20200409
  Serious: Yes (Hospitalization)
  Sender: FDA-Public Use
  Company Number: IT-TEVA-2019-IT-1161409

PATIENT
  Age: 70 Year
  Sex: Male
  Weight: 80 kg

DRUGS (1)
  1. QUETIAPINE. [Suspect]
     Active Substance: QUETIAPINE
     Indication: AGITATION
     Dosage: 25 MG ONE DAY
     Route: 048
     Dates: start: 20191117, end: 20191129

REACTIONS (4)
  - Restless legs syndrome [Recovering/Resolving]
  - Dysphagia [Recovering/Resolving]
  - Somnolence [Recovering/Resolving]
  - Apnoea [Recovering/Resolving]

NARRATIVE: CASE EVENT DATE: 20191118
